FAERS Safety Report 12299347 (Version 1)
Quarter: 2016Q2

REPORT INFORMATION
  Report Type: Spontaneous
  Country: US (occurrence: None)
  Receive Date: 20160422
  Receipt Date: 20160422
  Transmission Date: 20160815
  Serious: No
  Sender: FDA-Public Use
  Company Number: None

PATIENT
  Age: 54 Year
  Sex: Male

DRUGS (12)
  1. TESTOST CYO INJ [Concomitant]
  2. HYDROCO/APAP [Concomitant]
     Active Substance: ACETAMINOPHEN\HYDROCODONE
  3. TESTIM GEL [Concomitant]
  4. XALKORI [Suspect]
     Active Substance: CRIZOTINIB
     Indication: LUNG NEOPLASM MALIGNANT
     Route: 048
     Dates: start: 201512, end: 201604
  5. DEXAMETHASONE. [Concomitant]
     Active Substance: DEXAMETHASONE
  6. ENOXAPARIN [Concomitant]
     Active Substance: ENOXAPARIN
  7. AMOX/K CLAV [Concomitant]
     Active Substance: AMOXICILLIN\CLAVULANATE POTASSIUM
  8. GABAPENTIN. [Concomitant]
     Active Substance: GABAPENTIN
  9. PREDNISONE. [Concomitant]
     Active Substance: PREDNISONE
  10. FONDAPARINUX [Concomitant]
     Active Substance: FONDAPARINUX
  11. FENTANYL. [Concomitant]
     Active Substance: FENTANYL
  12. FLUTICASONE [Concomitant]
     Active Substance: FLUTICASONE\FLUTICASONE PROPIONATE

REACTIONS (1)
  - Disease progression [None]

NARRATIVE: CASE EVENT DATE: 201604
